FAERS Safety Report 24568462 (Version 1)
Quarter: 2024Q4

REPORT INFORMATION
  Report Type: Spontaneous
  Country: US (occurrence: US)
  Receive Date: 20241031
  Receipt Date: 20241031
  Transmission Date: 20250114
  Serious: Yes (Other)
  Sender: ALK-ABELLO
  Company Number: US-ALK-ABELLO A/S-2024AA004025

PATIENT

DRUGS (1)
  1. PRE-PEN [Suspect]
     Active Substance: BENZYLPENICILLOYL POLYLYSINE
     Indication: Diagnostic procedure
     Dosage: UNK
     Dates: start: 20241004

REACTIONS (2)
  - Drug hypersensitivity [Recovered/Resolved]
  - False negative investigation result [Unknown]
